FAERS Safety Report 8906474 (Version 1)
Quarter: 2012Q4

REPORT INFORMATION
  Report Type: Spontaneous
  Country: DK (occurrence: None)
  Receive Date: 20121107
  Receipt Date: 20121107
  Transmission Date: 20130627
  Serious: Yes (Death, Hospitalization, Other)
  Sender: FDA-Public Use
  Company Number: 2012MA012935

PATIENT
  Age: 61 Year
  Sex: Female
  Weight: 66 kg

DRUGS (25)
  1. HALOPERIDOL LACTATE [Suspect]
  2. RISPERIDONE (RISPERIDONE) [Suspect]
  3. QUETIAPINE [Suspect]
  4. DESIPRAMINE [Concomitant]
  5. LORAZEPAM [Concomitant]
  6. TRAZODONE [Concomitant]
  7. VENLAFAXINE [Concomitant]
  8. PREDNISONE [Concomitant]
  9. BUDESONIDE [Concomitant]
  10. MOMETASONE [Concomitant]
  11. FLUCONAZOLE [Concomitant]
  12. ALENDRONIC ACID [Concomitant]
  13. ATORVASTATIN [Concomitant]
  14. CELECOXIB [Concomitant]
  15. FUROSEMIDE [Concomitant]
  16. HYDROXYZINE [Concomitant]
  17. LEVOTHYROXINE SODIUM [Concomitant]
  18. LOPERAMIDE [Concomitant]
  19. OMEPRAZOLE [Concomitant]
  20. OMEPRAZOLE [Concomitant]
  21. SUMATRIPTAN [Concomitant]
  22. SALBUTAMOL [Concomitant]
  23. TRIMETHOPRIM/SULFAMETHOXAZOLE [Concomitant]
  24. HYDROXYCHLOROQUINE [Concomitant]
  25. CYCLOBENZAPRINE [Concomitant]

REACTIONS (12)
  - Neuroleptic malignant syndrome [None]
  - Fall [None]
  - Malaise [None]
  - Livedo reticularis [None]
  - Peripheral coldness [None]
  - Abdominal distension [None]
  - Serotonin syndrome [None]
  - Rhabdomyolysis [None]
  - Electrolyte imbalance [None]
  - Renal failure [None]
  - Respiratory failure [None]
  - Apallic syndrome [None]
